FAERS Safety Report 6098828-8 (Version None)
Quarter: 2009Q1

REPORT INFORMATION
  Report Type: 
  Country: None (occurrence: None)
  Receive Date: 20090302
  Receipt Date: 20090225
  Transmission Date: 20090719
  Serious: Yes (Hospitalization)
  Sender: FDA-Public Use
  Company Number: A0716272A

PATIENT
  Age: 49 Year
  Sex: Male
  Weight: 86.4 kg

DRUGS (9)
  1. AVANDIA [Suspect]
     Dosage: 4MG TWICE PER DAY
     Route: 048
     Dates: start: 20040203, end: 20070522
  2. METFORMIN HCL [Concomitant]
     Dates: start: 20020315
  3. LIPITOR [Concomitant]
  4. VYTORIN [Concomitant]
     Dates: start: 20041101, end: 20041101
  5. ZETIA [Concomitant]
     Dates: start: 20050201, end: 20070501
  6. CRESTOR [Concomitant]
  7. ZOCOR [Concomitant]
  8. AMARYL [Concomitant]
     Dates: start: 20040401, end: 20080301
  9. GLUCOPHAGE [Concomitant]

REACTIONS (5)
  - ANGINA PECTORIS [None]
  - BLOOD GLUCOSE INCREASED [None]
  - CORONARY ARTERY DISEASE [None]
  - LEFT VENTRICULAR DYSFUNCTION [None]
  - MYOCARDIAL ISCHAEMIA [None]
